FAERS Safety Report 7440027-9 (Version None)
Quarter: 2011Q2

REPORT INFORMATION
  Report Type: 
  Country: None (occurrence: None)
  Receive Date: 20110427
  Receipt Date: 20110422
  Transmission Date: 20111010
  Serious: Yes (Death)
  Sender: FDA-Public Use
  Company Number: PHHY2010LT47435

PATIENT
  Age: 61 Year
  Sex: Male

DRUGS (5)
  1. GLEEVEC [Suspect]
     Dosage: 600 MG, UNK
     Dates: start: 20070301
  2. GLEEVEC [Suspect]
     Dosage: 400 MG, UNK
     Route: 048
  3. GLEEVEC [Suspect]
     Dosage: 800 MG, UNK
     Dates: start: 20051101
  4. GLEEVEC [Suspect]
     Dosage: 400 MG, UNK
     Dates: end: 20061201
  5. GLEEVEC [Suspect]
     Indication: CHRONIC MYELOID LEUKAEMIA
     Dosage: 400 MG/DAY

REACTIONS (2)
  - PNEUMONIA LEGIONELLA [None]
  - BLOOD BILIRUBIN INCREASED [None]
